FAERS Safety Report 6367719-7 (Version None)
Quarter: 2009Q3

REPORT INFORMATION
  Report Type: 
  Country: None (occurrence: None)
  Receive Date: 20090921
  Receipt Date: 20090909
  Transmission Date: 20100115
  Serious: Yes (Hospitalization)
  Sender: FDA-Public Use
  Company Number: PHEH2009US10734

PATIENT
  Sex: Male

DRUGS (8)
  1. EXJADE [Suspect]
     Indication: MYELODYSPLASTIC SYNDROME
     Dosage: 1500 MG, QD
     Route: 048
     Dates: start: 20090622
  2. FOLIC ACID [Concomitant]
  3. JANUVIA [Concomitant]
  4. PAXIL [Concomitant]
  5. ASPIRIN [Concomitant]
  6. ATENOLOL [Concomitant]
  7. PLAVIX [Concomitant]
  8. ASTELIN [Concomitant]

REACTIONS (1)
  - LABORATORY TEST ABNORMAL [None]
